FAERS Safety Report 23804430 (Version 2)
Quarter: 2024Q3

REPORT INFORMATION
  Report Type: Spontaneous
  Country: FR (occurrence: FR)
  Receive Date: 20240501
  Receipt Date: 20240829
  Transmission Date: 20241016
  Serious: Yes (Disabling)
  Sender: FERRING
  Company Number: None

PATIENT

DRUGS (4)
  1. MENOPUR [Suspect]
     Active Substance: FOLLITROPIN\LUTEINIZING HORMONE
     Indication: Assisted fertilisation
     Dosage: 75 INTERNATIONAL UNIT, 1 TIME DAILY
     Route: 058
     Dates: start: 20230617, end: 20230626
  2. CETROTIDE [Suspect]
     Active Substance: CETRORELIX ACETATE
     Indication: Assisted fertilisation
     Dosage: 1 DOSAGE FORM, ONCE/SINGLE
     Route: 058
     Dates: start: 20230625, end: 20230625
  3. UTROGESTAN [Suspect]
     Active Substance: PROGESTERONE
     Indication: Assisted fertilisation
     Dosage: 2 DOSAGE FORM, 1 TIME DAILY, SOFT ORAL OR VAGINAL CAPSULE
     Route: 048
     Dates: start: 20230629, end: 20230719
  4. CHORIOGONADOTROPIN ALFA [Suspect]
     Active Substance: CHORIOGONADOTROPIN ALFA
     Indication: Assisted fertilisation
     Dosage: 1 DOSAGE FORM, ONCE/SINGLE
     Route: 058
     Dates: start: 20230627, end: 20230627

REACTIONS (1)
  - Retinopathy [Not Recovered/Not Resolved]

NARRATIVE: CASE EVENT DATE: 20230714
